FAERS Safety Report 17826034 (Version 1)
Quarter: 2020Q2

REPORT INFORMATION
  Report Type: Spontaneous
  Country: CN (occurrence: CN)
  Receive Date: 20200526
  Receipt Date: 20200526
  Transmission Date: 20200714
  Serious: Yes (Hospitalization)
  Sender: FDA-Public Use
  Company Number: CN-PFIZER INC-2020205179

PATIENT
  Age: 71 Year
  Sex: Male
  Weight: 55 kg

DRUGS (5)
  1. PAI TING [Concomitant]
     Indication: PAIN IN EXTREMITY
  2. METHYCOBAL [Concomitant]
     Active Substance: METHYLCOBALAMIN
     Indication: PAIN
     Dosage: 500 UG, 3X/DAY
     Route: 048
     Dates: start: 20200505, end: 20200510
  3. METHYCOBAL [Concomitant]
     Active Substance: METHYLCOBALAMIN
     Indication: PAIN IN EXTREMITY
  4. PAI TING [Concomitant]
     Indication: PAIN
     Dosage: 0.2 G, 3X/DAY
     Route: 048
     Dates: start: 20200505, end: 20200510
  5. CELEBREX [Suspect]
     Active Substance: CELECOXIB
     Indication: INTERVERTEBRAL DISC PROTRUSION
     Dosage: 200 MG, 2X/DAY
     Route: 048
     Dates: start: 20200505, end: 20200508

REACTIONS (5)
  - Rash erythematous [Recovering/Resolving]
  - Drug eruption [Recovering/Resolving]
  - Psoriasis [Recovering/Resolving]
  - Ulcerative keratitis [Recovering/Resolving]
  - Pruritus [Recovering/Resolving]

NARRATIVE: CASE EVENT DATE: 20200508
